FAERS Safety Report 18960010 (Version 2)
Quarter: 2021Q1

REPORT INFORMATION
  Report Type: Spontaneous
  Country: CH (occurrence: CH)
  Receive Date: 20210302
  Receipt Date: 20210311
  Transmission Date: 20210420
  Serious: Yes (Hospitalization)
  Sender: FDA-Public Use
  Company Number: CH-BAYER-2021-086296

PATIENT
  Age: 17 Year
  Sex: Female

DRUGS (2)
  1. CYCLACUR (ESTRADIOL VALERATE (+) NORGESTREL) [Suspect]
     Active Substance: ESTRADIOL VALERATE\NORGESTREL
     Indication: HORMONE REPLACEMENT THERAPY
     Dosage: UNK
     Route: 048
     Dates: start: 20200724, end: 20201107
  2. QLAIRA [Suspect]
     Active Substance: DIENOGEST\ESTRADIOL VALERATE
     Dosage: 1 DF, QD
     Route: 048
     Dates: start: 20201113

REACTIONS (5)
  - Depression suicidal [Recovering/Resolving]
  - Therapeutic response unexpected [None]
  - Off label use [None]
  - Intentional self-injury [Recovering/Resolving]
  - Abnormal withdrawal bleeding [Recovered/Resolved]
